FAERS Safety Report 6510180-X (Version None)
Quarter: 2009Q4

REPORT INFORMATION
  Report Type: 
  Country: None (occurrence: None)
  Receive Date: 20091222
  Receipt Date: 20091214
  Transmission Date: 20100525
  Serious: Yes (Other)
  Sender: FDA-Public Use
  Company Number: GXKR2009TR13451

PATIENT
  Age: 54 Year
  Sex: Female

DRUGS (4)
  1. RIBAVIRIN (NGX) [Suspect]
     Indication: HEPATITIS C POSITIVE
     Dosage: 1000 MG
     Route: 065
     Dates: start: 20070501, end: 20070901
  2. RIBAVIRIN (NGX) [Suspect]
     Dosage: SECOND ROUND
  3. PEG-INTRON [Suspect]
     Indication: HEPATITIS C
     Dosage: 100 UG, QW
     Route: 065
     Dates: start: 20070501, end: 20070901
  4. PEG-INTRON [Suspect]
     Dosage: SECOND ROUND: 180 UG, QW (48 WEEK THERAPY)
     Route: 065

REACTIONS (4)
  - CHOREA [None]
  - FACIAL PALSY [None]
  - NERVE DEGENERATION [None]
  - PAIN [None]
